FAERS Safety Report 10433418 (Version 3)
Quarter: 2014Q4

REPORT INFORMATION
  Report Type: Spontaneous
  Country: US (occurrence: US)
  Receive Date: 20140905
  Receipt Date: 20141204
  Transmission Date: 20150528
  Serious: Yes (Death, Other)
  Sender: FDA-Public Use
  Company Number: US-BAYER-2014-131672

PATIENT
  Age: 56 Year
  Sex: Male

DRUGS (2)
  1. XOFIGO [Suspect]
     Active Substance: RADIUM RA-223 DICHLORIDE
     Indication: PROSTATE CANCER METASTATIC
     Dosage: Q MONTHLY
     Dates: start: 20140715
  2. XOFIGO [Suspect]
     Active Substance: RADIUM RA-223 DICHLORIDE
     Indication: PROSTATE CANCER METASTATIC
     Dosage: Q MONTHLY
     Dates: start: 20140808

REACTIONS (5)
  - Metastasis [None]
  - Arrhythmia [Fatal]
  - Central nervous system lesion [None]
  - Hypoaesthesia [None]
  - Prostate cancer metastatic [Fatal]
